FAERS Safety Report 5330369-5 (Version None)
Quarter: 2007Q2

REPORT INFORMATION
  Report Type: 
  Country: None (occurrence: None)
  Receive Date: 20070521
  Receipt Date: 20070507
  Transmission Date: 20071010
  Serious: Yes (Death)
  Sender: FDA-Public Use
  Company Number: JP-SHR-JP-2007-017197

PATIENT
  Age: 82 Year
  Sex: Male

DRUGS (3)
  1. SOTALOL HCL [Suspect]
     Indication: VENTRICULAR TACHYCARDIA
     Dosage: 40 MG, 1X/DAY
     Route: 048
     Dates: start: 20060630, end: 20060820
  2. ARTIST [Concomitant]
     Dosage: 10 MG, 1X/DAY
     Route: 048
     Dates: start: 20041015, end: 20060820
  3. DIOVAN [Concomitant]
     Dosage: 80 MG, 1X/DAY
     Route: 048
     Dates: start: 20050223, end: 20060820

REACTIONS (1)
  - CEREBRAL INFARCTION [None]
